FAERS Safety Report 4300386-2 (Version None)
Quarter: 2004Q1

REPORT INFORMATION
  Report Type: 
  Country: None (occurrence: None)
  Receive Date: 20040220
  Receipt Date: 20040209
  Transmission Date: 20041129
  Serious: Yes (Life-Threatening, Hospitalization)
  Sender: FDA-Public Use
  Company Number: FR-GLAXOSMITHKLINE-B0322744A

PATIENT
  Age: 47 Year
  Sex: Female

DRUGS (5)
  1. ZOPHREN [Suspect]
     Indication: NAUSEA
     Dosage: 8MG SINGLE DOSE
     Route: 042
     Dates: start: 20040108, end: 20040108
  2. ENDOXAN [Concomitant]
     Dosage: 1155MG SINGLE DOSE
     Dates: start: 20040107
  3. MESNA [Concomitant]
     Dates: start: 20040107
  4. SOLU-MEDROL [Concomitant]
     Dates: start: 20040107
  5. COTAREG [Concomitant]

REACTIONS (9)
  - AKINESIA [None]
  - ARTERIOSPASM CORONARY [None]
  - CHEST DISCOMFORT [None]
  - COMA [None]
  - EJECTION FRACTION DECREASED [None]
  - MYOCARDIAL INFARCTION [None]
  - RESPIRATORY DISTRESS [None]
  - TROPONIN INCREASED [None]
  - VENTRICULAR DYSFUNCTION [None]
